FAERS Safety Report 14034132 (Version 1)
Quarter: 2017Q4

REPORT INFORMATION
  Report Type: Spontaneous
  Country: US (occurrence: US)
  Receive Date: 20171003
  Receipt Date: 20171003
  Transmission Date: 20180321
  Serious: Yes (Life-Threatening, Hospitalization, Disabling)
  Sender: FDA-Public Use
  Company Number: None

PATIENT
  Sex: Female
  Weight: 74.25 kg

DRUGS (17)
  1. GABAPENTIN. [Concomitant]
     Active Substance: GABAPENTIN
  2. PROMETHAZINE [Concomitant]
     Active Substance: PROMETHAZINE\PROMETHAZINE HYDROCHLORIDE
  3. CLONIDINE. [Suspect]
     Active Substance: CLONIDINE
  4. KETAMINE [Suspect]
     Active Substance: KETAMINE
  5. NORCO [Concomitant]
     Active Substance: ACETAMINOPHEN\HYDROCODONE BITARTRATE
  6. BACLOFEN. [Suspect]
     Active Substance: BACLOFEN
     Indication: NECK PAIN
     Route: 061
     Dates: start: 20140715, end: 20151028
  7. CYCLOBENZAPRINE. [Suspect]
     Active Substance: CYCLOBENZAPRINE
  8. DICLOFENAC [Suspect]
     Active Substance: DICLOFENAC
  9. METHYLPREDNISOLONE. [Suspect]
     Active Substance: METHYLPREDNISOLONE
     Indication: OCCIPITAL NEURALGIA
     Dates: start: 20150509
  10. TRAMADOL. [Suspect]
     Active Substance: TRAMADOL
  11. MULTIVITAMIN [Concomitant]
     Active Substance: VITAMINS
  12. GABAPENTIN. [Suspect]
     Active Substance: GABAPENTIN
  13. VITAMIN D [Concomitant]
     Active Substance: CHOLECALCIFEROL
  14. ZOMIG [Concomitant]
     Active Substance: ZOLMITRIPTAN
  15. PRILOSEC [Concomitant]
     Active Substance: OMEPRAZOLE MAGNESIUM
  16. BUPIVICAINE [Suspect]
     Active Substance: BUPIVACAINE
  17. LIDOCAINE. [Suspect]
     Active Substance: LIDOCAINE

REACTIONS (16)
  - Pain [None]
  - Movement disorder [None]
  - Hypophagia [None]
  - Poor quality sleep [None]
  - Brain injury [None]
  - Migraine [None]
  - Pruritus [None]
  - Gait disturbance [None]
  - Neuroma [None]
  - Lymphadenopathy [None]
  - Burning sensation [None]
  - Confusional state [None]
  - Ischaemia [None]
  - Demyelination [None]
  - Cognitive disorder [None]
  - Injury associated with device [None]

NARRATIVE: CASE EVENT DATE: 20150710
